FAERS Safety Report 6435756-X (Version None)
Quarter: 2009Q4

REPORT INFORMATION
  Report Type: 
  Country: None (occurrence: None)
  Receive Date: 20091111
  Receipt Date: 20091101
  Transmission Date: 20100525
  Serious: Yes (Other)
  Sender: FDA-Public Use
  Company Number: US-JNJFOC-20091101085

PATIENT
  Sex: Female

DRUGS (2)
  1. DURAGESIC-100 [Suspect]
     Route: 062
  2. DURAGESIC-100 [Suspect]
     Indication: ARTHRITIS
     Route: 062

REACTIONS (4)
  - BLADDER PAIN [None]
  - BODY HEIGHT DECREASED [None]
  - DYSURIA [None]
  - INAPPROPRIATE SCHEDULE OF DRUG ADMINISTRATION [None]
